FAERS Safety Report 17269431 (Version 2)
Quarter: 2020Q2

REPORT INFORMATION
  Report Type: Spontaneous
  Country: DE (occurrence: AE)
  Receive Date: 20200114
  Receipt Date: 20200402
  Transmission Date: 20200713
  Serious: No
  Sender: FDA-Public Use
  Company Number: DE-ASTRAZENECA-2020SE04212

PATIENT
  Sex: Female
  Weight: 85 kg

DRUGS (3)
  1. BENRALIZUMAB. [Suspect]
     Active Substance: BENRALIZUMAB
     Indication: ASTHMA
     Dosage: 30.0MG UNKNOWN
     Route: 058
     Dates: start: 201812
  2. HYDROCORTISON [Concomitant]
     Active Substance: HYDROCORTISONE
  3. PREDNISOLON [Concomitant]
     Active Substance: PREDNISOLONE

REACTIONS (1)
  - No adverse event [Unknown]
